FAERS Safety Report 7273678-5 (Version None)
Quarter: 2011Q1

REPORT INFORMATION
  Report Type: 
  Country: None (occurrence: None)
  Receive Date: 20110203
  Receipt Date: 20110117
  Transmission Date: 20110831
  Serious: Yes (Other)
  Sender: FDA-Public Use
  Company Number: US-AMGEN-USASP2010003085

PATIENT
  Age: 54 Year
  Sex: Female

DRUGS (3)
  1. CELEBREX [Concomitant]
  2. ENBREL [Suspect]
     Indication: RHEUMATOID ARTHRITIS
     Dosage: 50 MG, QWK
     Dates: start: 20101010, end: 20110111
  3. PLAQUENIL [Concomitant]
     Dosage: 200 MG, BID

REACTIONS (21)
  - URINARY RETENTION [None]
  - ABDOMINAL DISCOMFORT [None]
  - SKIN DISCOLOURATION [None]
  - INJECTION SITE PRURITUS [None]
  - HYPERHIDROSIS [None]
  - PAIN IN EXTREMITY [None]
  - CONTUSION [None]
  - VULVOVAGINAL BURNING SENSATION [None]
  - CONSTIPATION [None]
  - SKIN REACTION [None]
  - HEADACHE [None]
  - VESSEL PUNCTURE SITE HAEMORRHAGE [None]
  - PARAESTHESIA [None]
  - DIARRHOEA [None]
  - VAGINAL DISCHARGE [None]
  - INFLUENZA LIKE ILLNESS [None]
  - OEDEMA [None]
  - PRURITUS [None]
  - HYPOAESTHESIA [None]
  - OEDEMA PERIPHERAL [None]
  - LYMPHADENOPATHY [None]
